FAERS Safety Report 6049237-9 (Version None)
Quarter: 2009Q1

REPORT INFORMATION
  Report Type: 
  Country: None (occurrence: None)
  Receive Date: 20090123
  Receipt Date: 20090113
  Transmission Date: 20090719
  Serious: No
  Sender: FDA-Public Use
  Company Number: CA-ASTRAZENECA-2009UW01308

PATIENT
  Sex: Female

DRUGS (2)
  1. NEXIUM [Suspect]
     Route: 048
     Dates: start: 20060101
  2. NAPROSYN [Concomitant]

REACTIONS (3)
  - INFLAMMATION [None]
  - PAIN [None]
  - PERIARTHRITIS [None]
